FAERS Safety Report 10809637 (Version 1)
Quarter: 2015Q1

REPORT INFORMATION
  Report Type: Report from Study
  Country: US (occurrence: US)
  Receive Date: 20150217
  Receipt Date: 20150217
  Transmission Date: 20150721
  Serious: No
  Sender: FDA-Public Use
  Company Number: US-ABBVIE-14K-163-1208188-00

PATIENT
  Age: 49 Year
  Sex: Female

DRUGS (2)
  1. HUMIRA [Suspect]
     Active Substance: ADALIMUMAB
     Indication: RHEUMATOID ARTHRITIS
     Dates: start: 20131207
  2. PLAQUENIL [Concomitant]
     Active Substance: HYDROXYCHLOROQUINE SULFATE
     Indication: RHEUMATOID ARTHRITIS
     Dosage: FOR THE LAST 6 MONTHS

REACTIONS (8)
  - Inappropriate schedule of drug administration [Recovered/Resolved]
  - Injection site induration [Recovered/Resolved]
  - Injection site erythema [Recovered/Resolved]
  - Injection site pruritus [Not Recovered/Not Resolved]
  - Injection site pruritus [Recovered/Resolved]
  - Injection site induration [Not Recovered/Not Resolved]
  - Drug ineffective [Not Recovered/Not Resolved]
  - Injection site erythema [Not Recovered/Not Resolved]

NARRATIVE: CASE EVENT DATE: 20131207
